FAERS Safety Report 10784717 (Version 1)
Quarter: 2015Q1

REPORT INFORMATION
  Report Type: Spontaneous
  Country: JP (occurrence: None)
  Receive Date: 20150209
  Receipt Date: 20150209
  Transmission Date: 20150721
  Serious: Yes (Other)
  Sender: FDA-Public Use
  Company Number: FK201500607

PATIENT
  Age: 15 Year
  Sex: Female

DRUGS (3)
  1. ETOPOSIDE. [Concomitant]
     Active Substance: ETOPOSIDE
  2. IFOSFAMIDE (MANUFACTURER UNKNOWN) (IFOSFAMIDE) (IFOSFAMIDE) [Suspect]
     Active Substance: IFOSFAMIDE
     Indication: OSTEOSARCOMA
     Dosage: 3000 MG/M2, 1D
     Route: 042
  3. IFOSFAMIDE (MANUFACTURER UNKNOWN) (IFOSFAMIDE) (IFOSFAMIDE) [Suspect]
     Active Substance: IFOSFAMIDE
     Indication: METASTASES TO LUNG
     Dosage: 3000 MG/M2, 1D
     Route: 042

REACTIONS (9)
  - Agitation [None]
  - Nephropathy toxic [None]
  - Coma [None]
  - Acute kidney injury [None]
  - Toxicity to various agents [None]
  - Rhabdomyolysis [None]
  - Hallucination [None]
  - Neurotoxicity [None]
  - Haemodialysis [None]
